FAERS Safety Report 18642652 (Version 2)
Quarter: 2021Q2

REPORT INFORMATION
  Report Type: Spontaneous
  Country: CA (occurrence: CA)
  Receive Date: 20201221
  Receipt Date: 20210518
  Transmission Date: 20210717
  Serious: Yes (Other)
  Sender: FDA-Public Use
  Company Number: CA-SAMSUNG BIOEPIS-SB-2020-37400

PATIENT
  Age: 51 Year
  Sex: Male
  Weight: 98 kg

DRUGS (1)
  1. INFLIXIMAB [Suspect]
     Active Substance: INFLIXIMAB
     Indication: COLITIS ULCERATIVE
     Route: 042

REACTIONS (4)
  - Intentional product use issue [Recovered/Resolved]
  - Blood pressure increased [Recovered/Resolved]
  - Heart rate irregular [Recovered/Resolved]
  - Off label use [Recovered/Resolved]
